FAERS Safety Report 19032907 (Version 1)
Quarter: 2021Q1

REPORT INFORMATION
  Report Type: Spontaneous
  Country: US (occurrence: US)
  Receive Date: 20210319
  Receipt Date: 20210319
  Transmission Date: 20210420
  Serious: No
  Sender: FDA-Public Use
  Company Number: US-THERAPEUTICSMD-2021TMD00555

PATIENT
  Sex: Female

DRUGS (2)
  1. IMVEXXY [Suspect]
     Active Substance: ESTRADIOL
     Dosage: UNK
     Route: 067
     Dates: start: 202101
  2. IMVEXXY [Suspect]
     Active Substance: ESTRADIOL
     Dosage: UNK
     Route: 067
     Dates: end: 202101

REACTIONS (3)
  - Vulvovaginal burning sensation [Unknown]
  - Product shape issue [Not Recovered/Not Resolved]
  - Product colour issue [Not Recovered/Not Resolved]
